FAERS Safety Report 8220750 (Version 2)
Quarter: 2013Q2

REPORT INFORMATION
  Report Type: Spontaneous
  Country: US (occurrence: US)
  Receive Date: 20111102
  Receipt Date: 20130424
  Transmission Date: 20140414
  Serious: No
  Sender: FDA-Public Use
  Company Number: US-BIOGENIDEC-2011BI040703

PATIENT
  Sex: Female

DRUGS (1)
  1. AVONEX [Suspect]
     Indication: MULTIPLE SCLEROSIS
     Route: 030
     Dates: start: 20051101

REACTIONS (7)
  - Hypertension [Not Recovered/Not Resolved]
  - Injection site haemorrhage [Recovered/Resolved]
  - Haemorrhage [Unknown]
  - Needle issue [Unknown]
  - Tremor [Unknown]
  - Injection site bruising [Not Recovered/Not Resolved]
  - Anxiety [Unknown]
